FAERS Safety Report 4638503-7 (Version None)
Quarter: 2005Q2

REPORT INFORMATION
  Report Type: 
  Country: None (occurrence: None)
  Receive Date: 20050418
  Receipt Date: 20050321
  Transmission Date: 20051028
  Serious: No
  Sender: FDA-Public Use
  Company Number: 05H-062-0294079-00

PATIENT
  Age: 1 Month
  Sex: Male
  Weight: 1.5 kg

DRUGS (3)
  1. VANCOMYCIN HYDROCHLORIDE [Suspect]
     Indication: SEPSIS
     Dosage: 18 MG, DAILY, INTRAVENOUS
     Route: 042
  2. WATER [Concomitant]
  3. GLUCOSE [Concomitant]

REACTIONS (3)
  - INJECTION SITE ERYTHEMA [None]
  - INJECTION SITE REACTION [None]
  - INJECTION SITE VESICLES [None]
